FAERS Safety Report 5921301-1 (Version None)
Quarter: 2008Q4

REPORT INFORMATION
  Report Type: 
  Country: None (occurrence: None)
  Receive Date: 20081014
  Receipt Date: 20081001
  Transmission Date: 20090506
  Serious: Yes (Hospitalization)
  Sender: FDA-Public Use
  Company Number: 2008AL011047

PATIENT
  Age: 59 Year
  Sex: Female

DRUGS (8)
  1. NYSTATIN [Suspect]
     Dosage: 1 ML;QID;PO
     Route: 048
     Dates: end: 20080910
  2. DILTIAZEM HYDROCHLORIDE [Suspect]
     Dosage: 90 MG;QID;PO
     Route: 048
     Dates: end: 20080911
  3. GABAPENTIN [Concomitant]
  4. CANDESARTAN CILEXETIL [Concomitant]
  5. DIGOXIN [Concomitant]
  6. FENOFIBRATE [Concomitant]
  7. METFORMIN HYDROCHLORIDE [Concomitant]
  8. OMEPRAZOLE [Concomitant]

REACTIONS (2)
  - MALAISE [None]
  - RASH [None]
